FAERS Safety Report 8123463-7 (Version None)
Quarter: 2012Q1

REPORT INFORMATION
  Report Type: 
  Country: None (occurrence: None)
  Receive Date: 20120208
  Receipt Date: 20120127
  Transmission Date: 20120608
  Serious: Yes (Hospitalization)
  Sender: FDA-Public Use
  Company Number: PHFR2012GB000895

PATIENT
  Sex: Female

DRUGS (8)
  1. CLOZARIL [Suspect]
     Indication: SCHIZOPHRENIA
     Dosage: 500 MG, DAILY
     Route: 048
     Dates: start: 20070118
  2. MOVIPREP [Concomitant]
     Indication: CONSTIPATION
     Dosage: 1 DF, DAILY
     Route: 046
  3. ZOPICLONE [Concomitant]
     Indication: INSOMNIA
     Dosage: 7.5 MG, DAILY
     Route: 048
  4. ACETAMINOPHEN [Concomitant]
     Indication: PAIN
     Dosage: 1 DF, AS NEEDED
     Route: 048
  5. SENNA [Concomitant]
     Indication: CONSTIPATION
     Dosage: 2 DF, DAILY
     Route: 048
  6. PROCYCLIDINE HYDROCHLORIDE 2MG TAB [Concomitant]
     Indication: TREMOR
     Dosage: 10 MG, DAILY
     Route: 048
  7. IBUPROFEN [Concomitant]
     Indication: PAIN
     Dosage: 1 DF, DAILY
  8. TORADOL [Concomitant]
     Indication: PAIN

REACTIONS (3)
  - CONSTIPATION [None]
  - URINARY RETENTION [None]
  - FALL [None]
